FAERS Safety Report 5324575-3 (Version None)
Quarter: 2007Q2

REPORT INFORMATION
  Report Type: 
  Country: None (occurrence: None)
  Receive Date: 20070508
  Receipt Date: 20070425
  Transmission Date: 20071010
  Serious: Yes (Hospitalization)
  Sender: FDA-Public Use
  Company Number: MEDI-0005276

PATIENT
  Age: 6 Month
  Sex: Male

DRUGS (5)
  1. SYNAGIS [Suspect]
     Dosage: SUBCUTANEOUS
     Route: 058
     Dates: start: 20061115, end: 20061115
  2. ACID FUSIDIC (FUSIDIC ACID) [Concomitant]
  3. VITAMIN A [Concomitant]
  4. DIGOXIN [Concomitant]
  5. FUROSEMIDE [Concomitant]

REACTIONS (1)
  - DANDY-WALKER SYNDROME [None]
